FAERS Safety Report 4778831-8 (Version None)
Quarter: 2005Q3

REPORT INFORMATION
  Report Type: 
  Country: None (occurrence: None)
  Receive Date: 20050922
  Receipt Date: 20050911
  Transmission Date: 20060218
  Serious: Yes (Hospitalization, Other)
  Sender: FDA-Public Use
  Company Number: BR-2005-016058

PATIENT
  Age: 47 Year
  Sex: Male

DRUGS (7)
  1. BETASERON [Suspect]
     Indication: RELAPSING-REMITTING MULTIPLE SCLEROSIS
     Dosage: SEE IMAGE
     Route: 058
     Dates: start: 20050621, end: 20050731
  2. BETASERON [Suspect]
     Indication: RELAPSING-REMITTING MULTIPLE SCLEROSIS
     Dosage: SEE IMAGE
     Route: 058
     Dates: start: 20050801, end: 20050823
  3. IBUPROFEN [Concomitant]
  4. CYCLOBENZAPRINE HCL [Concomitant]
  5. BACLOFEN [Concomitant]
  6. CARBAMAZEPINE [Concomitant]
  7. FOLIC ACID [Concomitant]

REACTIONS (6)
  - AZOTAEMIA [None]
  - DISEASE PROGRESSION [None]
  - HEPATIC ENZYME INCREASED [None]
  - MULTIPLE SCLEROSIS RELAPSE [None]
  - URINARY TRACT INFECTION [None]
  - UROSEPSIS [None]
